FAERS Safety Report 9154793 (Version 3)
Quarter: 2013Q2

REPORT INFORMATION
  Report Type: Spontaneous
  Country: AU (occurrence: AU)
  Receive Date: 20130311
  Receipt Date: 20130517
  Transmission Date: 20140414
  Serious: Yes (Life-Threatening, Other)
  Sender: FDA-Public Use
  Company Number: AU-PFIZER INC-2012276490

PATIENT
  Age: 37 Year
  Sex: Male
  Weight: 64 kg

DRUGS (5)
  1. VIAGRA [Suspect]
     Indication: PULMONARY HYPERTENSION
     Dosage: 20 MG, 3X/DAY
     Route: 048
     Dates: start: 201110
  2. BOSENTAN [Concomitant]
     Indication: PULMONARY ARTERIAL HYPERTENSION
     Dosage: 125 MG, 2X/DAY
     Route: 048
     Dates: start: 200906
  3. WARFARIN [Concomitant]
     Indication: PULMONARY ARTERIAL HYPERTENSION
     Dosage: 3 OR 4MG, 1X/DAY
     Route: 048
     Dates: start: 200906
  4. FRUSEMIDE [Concomitant]
     Indication: PULMONARY ARTERIAL HYPERTENSION
     Dosage: 40 MG, 1X/DAY
     Route: 048
     Dates: start: 20120919
  5. SPIRONOLACTONE [Concomitant]
     Dosage: 12.5 MG DAILY
     Dates: start: 20120901

REACTIONS (4)
  - Syncope [Recovered/Resolved]
  - Pulmonary hypertension [Unknown]
  - Vascular resistance pulmonary increased [Unknown]
  - Off label use [Unknown]
